FAERS Safety Report 8525165-1 (Version None)
Quarter: 2012Q3

REPORT INFORMATION
  Report Type: 
  Country: None (occurrence: None)
  Receive Date: 20120720
  Receipt Date: 20120716
  Transmission Date: 20120928
  Serious: Yes (Hospitalization, Other)
  Sender: FDA-Public Use
  Company Number: PHEH2006US01242

PATIENT
  Sex: Female
  Weight: 59.864 kg

DRUGS (59)
  1. ZELNORM                                 /USA/ [Concomitant]
     Indication: IRRITABLE BOWEL SYNDROME
  2. BEVACIZUMAB [Concomitant]
  3. QVAR 40 [Concomitant]
  4. AZITHROMYCIN [Concomitant]
  5. DRONABINOL [Concomitant]
  6. LEVOXYL [Concomitant]
  7. RADIATION THERAPY [Concomitant]
  8. BECLOMETHASONE AQUEOUS [Concomitant]
  9. ACYCLOVIR [Concomitant]
  10. MYCOLOG [Concomitant]
  11. ESTRING [Concomitant]
  12. LUNESTA [Concomitant]
  13. ZOMETA [Suspect]
     Indication: BREAST CANCER METASTATIC
     Dosage: 4 MG, QMO
     Dates: start: 20020801, end: 20051001
  14. DIFLUCAN [Concomitant]
  15. ZYRTEC [Concomitant]
  16. ACIPHEX [Concomitant]
  17. PHENAZOPYRIDINE HCL TAB [Concomitant]
  18. METOCLOPRAMIDE [Concomitant]
  19. DOXYCYCLINE [Concomitant]
  20. MARINOL [Concomitant]
  21. MARIJUANA [Concomitant]
  22. SIMVASTATIN [Concomitant]
  23. ABILIFY [Concomitant]
  24. PREDNISOLONE [Concomitant]
  25. TEMAZEPAM [Concomitant]
  26. FASLODEX [Concomitant]
     Dosage: 5 ML, QMO
     Route: 030
  27. PAXIL [Concomitant]
  28. AVASTIN [Concomitant]
  29. ATIVAN [Concomitant]
  30. SPIRIVA [Concomitant]
  31. ASPIRIN [Concomitant]
  32. SINEQUAN [Concomitant]
  33. MONTELUKAST [Concomitant]
  34. BENADRYL ^PFIZER WARNER-LAMBERT^ [Concomitant]
  35. CELEXA [Concomitant]
  36. SYNTHROID [Concomitant]
  37. CONCERTA [Concomitant]
  38. NASACORT [Concomitant]
  39. KEFLEX [Concomitant]
  40. PROZAC [Concomitant]
  41. REGLAN [Concomitant]
  42. ACIDOPHILUS ^ZYMA^ [Concomitant]
  43. TETRACYCLINE [Concomitant]
  44. PRILOSEC [Concomitant]
  45. SINGULAIR [Concomitant]
  46. CORTISONE ACETATE [Concomitant]
  47. LEVOTHYROXINE SODIUM [Concomitant]
  48. WELLBUTRIN XL [Concomitant]
  49. PROVIGIL [Concomitant]
  50. PANTOPRAZOLE [Concomitant]
  51. TAMOXIFEN CITRATE [Concomitant]
  52. AMBIEN [Concomitant]
  53. MOTRIN [Concomitant]
  54. GABAPENTIN [Concomitant]
  55. FEMARA [Concomitant]
     Indication: BREAST CANCER METASTATIC
     Dates: start: 20020801
  56. LEXAPRO [Concomitant]
  57. ZELNORM                                 /CAN/ [Concomitant]
  58. VALTREX [Concomitant]
  59. LORAZEPAM [Concomitant]

REACTIONS (82)
  - INTERVERTEBRAL DISC PROTRUSION [None]
  - METASTASES TO THORAX [None]
  - METASTASES TO LIVER [None]
  - GASTROOESOPHAGEAL REFLUX DISEASE [None]
  - DYSPEPSIA [None]
  - EYE PRURITUS [None]
  - MENISCUS LESION [None]
  - SUICIDAL IDEATION [None]
  - BONE LESION [None]
  - DEPRESSION [None]
  - CHRONIC OBSTRUCTIVE PULMONARY DISEASE [None]
  - WHITE BLOOD CELL COUNT DECREASED [None]
  - BLOOD CALCIUM INCREASED [None]
  - DYSURIA [None]
  - LIBIDO DECREASED [None]
  - BLOOD CORTISOL ABNORMAL [None]
  - METASTASES TO BONE [None]
  - AMNESIA [None]
  - LIGAMENT RUPTURE [None]
  - NEOPLASM MALIGNANT [None]
  - PYREXIA [None]
  - JOINT EFFUSION [None]
  - BRONCHITIS [None]
  - PAIN [None]
  - PAIN IN EXTREMITY [None]
  - HAEMATOCRIT INCREASED [None]
  - MICTURITION URGENCY [None]
  - FIBROCYSTIC BREAST DISEASE [None]
  - ANXIETY [None]
  - SUBCUTANEOUS ABSCESS [None]
  - DECREASED APPETITE [None]
  - PARKINSON'S DISEASE [None]
  - CHONDROSIS [None]
  - SPINAL OSTEOARTHRITIS [None]
  - LUMBAR SPINAL STENOSIS [None]
  - INFECTED DERMAL CYST [None]
  - URINARY TRACT INFECTION [None]
  - BLOOD CHOLESTEROL INCREASED [None]
  - CARTILAGE ATROPHY [None]
  - HUMERUS FRACTURE [None]
  - HIATUS HERNIA [None]
  - BONE DISORDER [None]
  - METASTASES TO SPINE [None]
  - PULMONARY CONGESTION [None]
  - URINARY INCONTINENCE [None]
  - FALL [None]
  - EOSINOPHIL COUNT INCREASED [None]
  - CHILLS [None]
  - SLEEP DISORDER [None]
  - LUNG DISORDER [None]
  - LACRIMATION INCREASED [None]
  - VOMITING [None]
  - HYPOTHYROIDISM [None]
  - INTERVERTEBRAL DISC DEGENERATION [None]
  - BALANCE DISORDER [None]
  - NEOPLASM PROGRESSION [None]
  - OSTEOPOROSIS [None]
  - VASCULAR ANOMALY [None]
  - BACK PAIN [None]
  - CONSTIPATION [None]
  - RED BLOOD CELL COUNT INCREASED [None]
  - POLLAKIURIA [None]
  - VULVOVAGINAL DRYNESS [None]
  - ADJUSTMENT DISORDER [None]
  - SWELLING [None]
  - ORAL PAIN [None]
  - DIARRHOEA [None]
  - JOINT INJURY [None]
  - ACUTE CORONARY SYNDROME [None]
  - OSTEONECROSIS OF JAW [None]
  - ALOPECIA [None]
  - BLOOD THYROID STIMULATING HORMONE DECREASED [None]
  - MUSCLE STRAIN [None]
  - RADICULITIS [None]
  - CHEST PAIN [None]
  - EAR CONGESTION [None]
  - ABDOMINAL PAIN UPPER [None]
  - NAUSEA [None]
  - HEPATIC CYST [None]
  - STRESS [None]
  - BLADDER DISORDER [None]
  - EXOSTOSIS [None]
